FAERS Safety Report 7407796-5 (Version None)
Quarter: 2011Q2

REPORT INFORMATION
  Report Type: 
  Country: None (occurrence: None)
  Receive Date: 20110412
  Receipt Date: 20110330
  Transmission Date: 20111010
  Serious: Yes (Other)
  Sender: FDA-Public Use
  Company Number: PHHY2011US26675

PATIENT
  Sex: Female

DRUGS (1)
  1. GILENYA [Suspect]
     Indication: MULTIPLE SCLEROSIS
     Dosage: 0.5 MG, DAILY
     Route: 048
     Dates: start: 20110321, end: 20110404

REACTIONS (10)
  - LOCAL SWELLING [None]
  - HYPOAESTHESIA [None]
  - TACHYCARDIA [None]
  - ANXIETY [None]
  - DISORIENTATION [None]
  - HYPOAESTHESIA ORAL [None]
  - CHEST DISCOMFORT [None]
  - DIARRHOEA [None]
  - ABDOMINAL DISTENSION [None]
  - FLATULENCE [None]
